FAERS Safety Report 5241592-2 (Version None)
Quarter: 2007Q1

REPORT INFORMATION
  Report Type: 
  Country: None (occurrence: None)
  Receive Date: 20070212
  Receipt Date: 20070212
  Transmission Date: 20070707
  Serious: No
  Sender: FDA-Public Use
  Company Number: None

PATIENT
  Sex: Female
  Weight: 57 kg

DRUGS (3)
  1. CARBOPLATIN [Suspect]
     Indication: ENDOMETRIAL CANCER RECURRENT
     Dosage: 579 MG
  2. CARBOPLATIN [Suspect]
     Indication: ENDOMETRIAL CANCER STAGE IV
     Dosage: 579 MG
  3. TAXOL [Suspect]
     Dosage: 274.5 MG

REACTIONS (6)
  - ACTIVITIES OF DAILY LIVING IMPAIRED [None]
  - MUCOSAL INFLAMMATION [None]
  - NEUTROPENIA [None]
  - PERINEAL PAIN [None]
  - SKIN EXFOLIATION [None]
  - SKIN ULCER [None]
